FAERS Safety Report 10886802 (Version 2)
Quarter: 2015Q1

REPORT INFORMATION
  Report Type: Report from Study
  Country: US (occurrence: US)
  Receive Date: 20150304
  Receipt Date: 20150324
  Transmission Date: 20150721
  Serious: Yes (Hospitalization)
  Sender: FDA-Public Use
  Company Number: US-ACTELION-A-NJ2015-114021

PATIENT
  Age: 61 Year
  Sex: Male

DRUGS (7)
  1. SPIRIVA [Concomitant]
     Active Substance: TIOTROPIUM BROMIDE MONOHYDRATE
  2. ADVAIR HFA [Concomitant]
     Active Substance: FLUTICASONE PROPIONATE\SALMETEROL XINAFOATE
  3. VENTAVIS [Suspect]
     Active Substance: ILOPROST
     Indication: PULMONARY ARTERIAL HYPERTENSION
     Dosage: 6X/DAY
     Route: 055
     Dates: start: 20150108
  4. ALBUTEROL. [Concomitant]
     Active Substance: ALBUTEROL
  5. AMLODIPINE [Concomitant]
     Active Substance: AMLODIPINE BESYLATE
  6. LASIX [Concomitant]
     Active Substance: FUROSEMIDE
  7. SIMVASTATIN. [Concomitant]
     Active Substance: SIMVASTATIN

REACTIONS (1)
  - Lung transplant [Not Recovered/Not Resolved]

NARRATIVE: CASE EVENT DATE: 20150219
